FAERS Safety Report 14143639 (Version 1)
Quarter: 2017Q4

REPORT INFORMATION
  Report Type: Spontaneous
  Country: FR (occurrence: FR)
  Receive Date: 20171031
  Receipt Date: 20171031
  Transmission Date: 20180321
  Serious: Yes (Other)
  Sender: FDA-Public Use
  Company Number: FR-MERCK KGAA-2032761

PATIENT
  Age: 61 Year
  Sex: Female

DRUGS (2)
  1. NOVOTHYROX [Suspect]
     Active Substance: LEVOTHYROXINE SODIUM
     Indication: AUTOIMMUNE THYROIDITIS
     Route: 048
     Dates: start: 20170403, end: 201707
  2. LEVOTHYROX [Suspect]
     Active Substance: LEVOTHYROXINE
     Dates: start: 201707

REACTIONS (13)
  - Apathy [Recovering/Resolving]
  - Muscle spasms [Recovering/Resolving]
  - Blood thyroid stimulating hormone [Recovering/Resolving]
  - Visual impairment [Recovering/Resolving]
  - Abdominal distension [Recovering/Resolving]
  - Alopecia [Recovering/Resolving]
  - Memory impairment [Recovering/Resolving]
  - Weight decreased [Recovering/Resolving]
  - Headache [Recovering/Resolving]
  - Fatigue [Recovering/Resolving]
  - Anxiety [Recovering/Resolving]
  - Malaise [Recovering/Resolving]
  - Tachycardia [Recovering/Resolving]

NARRATIVE: CASE EVENT DATE: 201705
